FAERS Safety Report 4781987-4 (Version None)
Quarter: 2005Q3

REPORT INFORMATION
  Report Type: 
  Country: None (occurrence: None)
  Receive Date: 20050928
  Receipt Date: 20050718
  Transmission Date: 20060218
  Serious: Yes (Hospitalization, Other)
  Sender: FDA-Public Use
  Company Number: US-MERCK-0507USA02981

PATIENT
  Age: 37 Year
  Sex: Male
  Weight: 75 kg

DRUGS (10)
  1. VIOXX [Suspect]
     Indication: TENDONITIS
     Route: 048
     Dates: start: 20010101
  2. TOPROL-XL [Concomitant]
     Route: 065
  3. CRESTOR [Concomitant]
     Route: 065
  4. ASPIRIN [Concomitant]
     Route: 065
  5. SKELAXIN [Concomitant]
     Route: 065
  6. IMDUR [Concomitant]
     Route: 065
  7. FOLTX [Concomitant]
     Route: 065
  8. NULEV [Concomitant]
     Route: 065
  9. NASACORT [Concomitant]
     Route: 065
  10. CELEBREX [Concomitant]
     Route: 065

REACTIONS (3)
  - BACK PAIN [None]
  - CHEST PAIN [None]
  - MYOCARDIAL INFARCTION [None]
